FAERS Safety Report 17402399 (Version 1)
Quarter: 2020Q1

REPORT INFORMATION
  Report Type: Spontaneous
  Country: US (occurrence: US)
  Receive Date: 20200211
  Receipt Date: 20200211
  Transmission Date: 20200409
  Serious: No
  Sender: FDA-Public Use
  Company Number: US-SA-2020SA032886

PATIENT
  Age: 68 Year
  Sex: Female

DRUGS (2)
  1. MULTAQ [Suspect]
     Active Substance: DRONEDARONE
     Dosage: SHE CUT HER DOSE IN HALF AND ONLY USED 400MG YESTERDAY
     Route: 065
  2. MULTAQ [Suspect]
     Active Substance: DRONEDARONE
     Indication: ATRIAL FIBRILLATION
     Dosage: 800 MG (AS USE)
     Route: 065
     Dates: start: 201907

REACTIONS (1)
  - Cardiac discomfort [Unknown]
